FAERS Safety Report 13667070 (Version 1)
Quarter: 2017Q2

REPORT INFORMATION
  Report Type: Spontaneous
  Country: US (occurrence: US)
  Receive Date: 20170619
  Receipt Date: 20170619
  Transmission Date: 20170830
  Serious: Yes (Other)
  Sender: FDA-Public Use
  Company Number: US-ROCHE-678890

PATIENT
  Age: 41 Year
  Sex: Female

DRUGS (7)
  1. ANASTROZOLE. [Concomitant]
     Active Substance: ANASTROZOLE
     Route: 065
  2. ZOLEDRONIC ACID [Concomitant]
     Active Substance: ZOLEDRONIC ACID
     Route: 065
  3. CAPECITABINE. [Suspect]
     Active Substance: CAPECITABINE
     Indication: BREAST CANCER METASTATIC
     Dosage: 1500 MG IN MORNING AND 1000 MG IN EVENING FOR 2 CYCLES WITH A 1 WEEK BREAK
     Route: 048
  4. GOSERELIN [Concomitant]
     Active Substance: GOSERELIN
     Route: 065
  5. CAPECITABINE. [Suspect]
     Active Substance: CAPECITABINE
     Dosage: FOR 10 DAYS OF THERAPY WITH 10 DAYS BREAK
     Route: 048
  6. VITAMIN E [Concomitant]
     Active Substance: .ALPHA.-TOCOPHEROL
     Dosage: VITAMIN E SUPPLEMENTS
     Route: 065
  7. SELENIUM [Concomitant]
     Active Substance: SELENIUM
     Dosage: SELENIUM SUPPLEMENTS
     Route: 065

REACTIONS (1)
  - Nail pigmentation [Unknown]
